FAERS Safety Report 7778136-7 (Version None)
Quarter: 2011Q3

REPORT INFORMATION
  Report Type: 
  Country: None (occurrence: None)
  Receive Date: 20110926
  Receipt Date: 20100803
  Transmission Date: 20111222
  Serious: No
  Sender: FDA-Public Use
  Company Number: US-MUTUAL PHARMACEUTICAL COMPANY, INC.-2010P1000655

PATIENT
  Sex: Female

DRUGS (2)
  1. LEVONORGESTREL [Suspect]
     Route: 048
     Dates: start: 20100709
  2. BACTRIM [Suspect]
     Route: 048
     Dates: start: 20100701, end: 20100701

REACTIONS (2)
  - MENSTRUATION DELAYED [None]
  - DRUG INTERACTION [None]
